FAERS Safety Report 21740817 (Version 1)
Quarter: 2022Q4

REPORT INFORMATION
  Report Type: Other
  Country: JP (occurrence: JP)
  Receive Date: 20221216
  Receipt Date: 20221216
  Transmission Date: 20230113
  Serious: Yes (Hospitalization, Other)
  Sender: FDA-Public Use
  Company Number: JP-CHUGAI-A2020023971ROCHE

PATIENT
  Age: 73 Year

DRUGS (11)
  1. ATEZOLIZUMAB [Suspect]
     Active Substance: ATEZOLIZUMAB
     Indication: Non-small cell lung cancer
     Dosage: 3 COURSES WITH UNCERTAIN DOSE INTERVAL?RECENT DOSE ON 14/APR/2020
     Route: 041
     Dates: start: 20200218, end: 20200414
  2. BEVACIZUMAB [Suspect]
     Active Substance: BEVACIZUMAB
     Indication: Non-small cell lung cancer
     Dosage: 3 COURSES WITH UNCERTAIN DOSE INTERVAL
     Route: 041
     Dates: start: 20200218, end: 20200414
  3. CARBOPLATIN [Suspect]
     Active Substance: CARBOPLATIN
     Indication: Non-small cell lung cancer
     Dosage: 3 COURSES WITH UNCERTAIN DOSE INTERVAL
     Route: 041
     Dates: start: 20200218, end: 20200414
  4. OMEPRAZOLE [Suspect]
     Active Substance: OMEPRAZOLE
     Indication: Prophylaxis
     Dosage: UNCERTAIN DOSE INTERVAL
     Route: 048
     Dates: start: 20200129
  5. LOXOPROFEN SODIUM DIHYDRATE [Suspect]
     Active Substance: LOXOPROFEN SODIUM DIHYDRATE
     Indication: Non-small cell lung cancer
     Route: 048
     Dates: start: 20200129
  6. PACLITAXEL [Concomitant]
     Active Substance: PACLITAXEL
     Indication: Non-small cell lung cancer
     Dosage: 3 COURSES WITH UNCERTAIN DOSE INTERVAL
     Route: 041
     Dates: start: 20200218, end: 20200414
  7. CALONAL [Concomitant]
     Active Substance: ACETAMINOPHEN
     Indication: Non-small cell lung cancer
     Dosage: UNCERTAIN DOSE INTERVAL
     Route: 048
     Dates: start: 20191211
  8. LYRICA [Concomitant]
     Active Substance: PREGABALIN
     Indication: Neuropathy peripheral
     Dosage: UNCERTAIN DOSE INTERVAL
     Route: 048
     Dates: start: 20200220
  9. OLMESARTAN MEDOXOMIL [Concomitant]
     Active Substance: OLMESARTAN MEDOXOMIL
     Indication: Hypertension
     Dosage: UNCERTAIN DOSE INTERVAL
     Route: 048
  10. DESLORATADINE [Concomitant]
     Active Substance: DESLORATADINE
     Indication: Rash
     Dosage: UNCERTAIN DOSE INTERVAL
     Route: 048
     Dates: start: 20200302
  11. AMLODIPINE [Concomitant]
     Active Substance: AMLODIPINE BESYLATE
     Indication: Hypertension
     Dosage: UNCERTAIN DOSE INTERVAL
     Route: 048
     Dates: start: 20200414

REACTIONS (6)
  - Acute kidney injury [Recovering/Resolving]
  - Proteinuria [Unknown]
  - White blood cell count decreased [Unknown]
  - Neutrophil count decreased [Unknown]
  - Lymphocyte count decreased [Unknown]
  - Platelet count decreased [Unknown]

NARRATIVE: CASE EVENT DATE: 20200221
